FAERS Safety Report 9123642 (Version 2)
Quarter: 2013Q1

REPORT INFORMATION
  Report Type: Spontaneous
  Country: CN (occurrence: CN)
  Receive Date: 20130227
  Receipt Date: 20130311
  Transmission Date: 20140127
  Serious: Yes (Hospitalization)
  Sender: FDA-Public Use
  Company Number: CN-BAYER-2013-023182

PATIENT
  Age: 29 Year
  Sex: Female

DRUGS (1)
  1. CANESTEN (KAINITING) [Suspect]
     Indication: VAGINAL INFECTION
     Dosage: 1 DF, ONCE
     Route: 067
     Dates: start: 20130217, end: 20130217

REACTIONS (3)
  - Amniorrhoea [None]
  - Premature labour [None]
  - Exposure during pregnancy [None]
